FAERS Safety Report 8157763 (Version 3)
Quarter: 2013Q3

REPORT INFORMATION
  Report Type: Spontaneous
  Country: US (occurrence: US)
  Receive Date: 20110927
  Receipt Date: 20130927
  Transmission Date: 20140515
  Serious: Yes (Death)
  Sender: FDA-Public Use
  Company Number: US-ASTRAZENECA-2011SE17590

PATIENT
  Age: 26 Year
  Sex: Male
  Weight: 68 kg

DRUGS (7)
  1. SEROQUEL [Suspect]
     Indication: BIPOLAR DISORDER
     Route: 048
     Dates: start: 2011, end: 20130605
  2. SEROQUEL [Suspect]
     Indication: SLEEP DISORDER
     Route: 048
     Dates: start: 2011, end: 20130605
  3. SEROQUEL [Suspect]
     Indication: DEPRESSION
     Route: 048
     Dates: start: 2011, end: 20130605
  4. SEROQUEL [Suspect]
     Indication: ANXIETY
     Route: 048
     Dates: start: 2011, end: 20130605
  5. SAPHRIS [Suspect]
     Indication: NERVOUSNESS
     Route: 002
     Dates: start: 2013, end: 20130605
  6. SAPHRIS [Suspect]
     Indication: PARANOIA
     Route: 002
     Dates: start: 2013, end: 20130605
  7. LOT OF CONCOMITANT MEDICATIONS [Concomitant]

REACTIONS (13)
  - Accidental overdose [Fatal]
  - Disturbance in attention [Unknown]
  - Anxiety [Unknown]
  - Weight fluctuation [Unknown]
  - Paranoia [Unknown]
  - Eating disorder [Unknown]
  - Insomnia [Unknown]
  - Emotional disorder [Unknown]
  - Mood altered [Unknown]
  - Bipolar I disorder [Unknown]
  - Bipolar disorder [Unknown]
  - Tremor [Unknown]
  - Drug dose omission [Unknown]
